FAERS Safety Report 6859955-8 (Version None)
Quarter: 2010Q3

REPORT INFORMATION
  Report Type: 
  Country: None (occurrence: None)
  Receive Date: 20100720
  Receipt Date: 20100712
  Transmission Date: 20110219
  Serious: Yes (Disabling)
  Sender: FDA-Public Use
  Company Number: DE-SOLVAY-00310003422

PATIENT
  Age: 66 Year
  Sex: Male
  Weight: 59 kg

DRUGS (1)
  1. KREON 10,000/25,000 [Suspect]
     Indication: PANCREATICODUODENECTOMY
     Dosage: DAILY DOSE:  UNKNOWN, UNIT DOSE: 10,000/25,000;AT EACH MEAL WITH FAT 1-3 PIECES 25,000 OR 1-3 10,000
     Route: 065
     Dates: start: 20080901

REACTIONS (5)
  - ABDOMINAL PAIN UPPER [None]
  - GLOSSITIS [None]
  - INCORRECT DRUG DOSAGE FORM ADMINISTERED [None]
  - NAUSEA [None]
  - STOMATITIS [None]
